FAERS Safety Report 5611565-6 (Version None)
Quarter: 2008Q1

REPORT INFORMATION
  Report Type: 
  Country: None (occurrence: None)
  Receive Date: 20080201
  Receipt Date: 20080110
  Transmission Date: 20080703
  Serious: No
  Sender: FDA-Public Use
  Company Number: US-BOEHRINGER INGELHEIM GMBH, GERMANY-2008-BP-00489BP

PATIENT
  Sex: Male

DRUGS (7)
  1. SPIRIVA [Suspect]
     Indication: PULMONARY CONGESTION
     Route: 055
  2. ASPIRIN [Concomitant]
  3. NEXIUM [Concomitant]
  4. AMIODARONE [Concomitant]
  5. COZAAR [Concomitant]
  6. VYTORIN [Concomitant]
  7. PROVENTIL [Concomitant]

REACTIONS (2)
  - LOWER RESPIRATORY TRACT INFECTION [None]
  - RHINITIS [None]
